FAERS Safety Report 8469500-1 (Version None)
Quarter: 2012Q2

REPORT INFORMATION
  Report Type: 
  Country: None (occurrence: None)
  Receive Date: 20120626
  Receipt Date: 20120622
  Transmission Date: 20120825
  Serious: Yes (Death, Hospitalization, Other)
  Sender: FDA-Public Use
  Company Number: US-ACTELION-A-NJ2012-60731

PATIENT

DRUGS (4)
  1. TRACLEER [Suspect]
     Indication: PULMONARY ARTERIAL HYPERTENSION
     Dosage: UNK
     Route: 048
     Dates: start: 20090224, end: 20120507
  2. CALCIUM CHANNEL BLOCKERS [Concomitant]
  3. TYVASO [Concomitant]
  4. REVATIO [Concomitant]

REACTIONS (7)
  - DYSPNOEA [None]
  - THROAT IRRITATION [None]
  - FLUSHING [None]
  - VIRAL INFECTION [None]
  - PYREXIA [None]
  - AORTIC DISSECTION [None]
  - CHRONIC OBSTRUCTIVE PULMONARY DISEASE [None]
